FAERS Safety Report 13301014 (Version 1)
Quarter: 2017Q1

REPORT INFORMATION
  Report Type: Spontaneous
  Country: US (occurrence: US)
  Receive Date: 20170306
  Receipt Date: 20170306
  Transmission Date: 20170428
  Serious: No
  Sender: FDA-Public Use
  Company Number: None

PATIENT
  Age: 61 Year
  Sex: Female
  Weight: 72.55 kg

DRUGS (1)
  1. DULOXETINE 20MG TEVA [Suspect]
     Active Substance: DULOXETINE
     Indication: NEURALGIA
     Route: 048
     Dates: start: 20170215, end: 20170221

REACTIONS (5)
  - Vomiting [None]
  - Headache [None]
  - Fatigue [None]
  - Nausea [None]
  - Diarrhoea [None]

NARRATIVE: CASE EVENT DATE: 20170220
